FAERS Safety Report 18189350 (Version 7)
Quarter: 2021Q1

REPORT INFORMATION
  Report Type: Report from Study
  Country: None (occurrence: CO)
  Receive Date: 20200825
  Receipt Date: 20210303
  Transmission Date: 20210419
  Serious: Yes (Hospitalization, Other)
  Sender: FDA-Public Use
  Company Number: CO-ABBVIE-20K-036-3460675-00

PATIENT
  Age: 74 Year
  Sex: Female
  Weight: 60 kg

DRUGS (2)
  1. HUMIRA [Suspect]
     Active Substance: ADALIMUMAB
     Indication: PSORIATIC ARTHROPATHY
     Route: 058
     Dates: end: 20200830
  2. HUMIRA [Suspect]
     Active Substance: ADALIMUMAB
     Indication: PSORIATIC ARTHROPATHY
     Route: 058
     Dates: start: 20150409

REACTIONS (32)
  - Gastric disorder [Not Recovered/Not Resolved]
  - Amnesia [Unknown]
  - Immunodeficiency [Not Recovered/Not Resolved]
  - Asthenia [Not Recovered/Not Resolved]
  - Blindness [Not Recovered/Not Resolved]
  - Lymphoma [Not Recovered/Not Resolved]
  - Pyrexia [Not Recovered/Not Resolved]
  - Fatigue [Not Recovered/Not Resolved]
  - Lymphadenopathy [Unknown]
  - Skin burning sensation [Not Recovered/Not Resolved]
  - Arthritis [Not Recovered/Not Resolved]
  - Muscle spasms [Not Recovered/Not Resolved]
  - Immune system disorder [Not Recovered/Not Resolved]
  - Illness [Not Recovered/Not Resolved]
  - Tendonitis [Not Recovered/Not Resolved]
  - Malaise [Not Recovered/Not Resolved]
  - Hyperhidrosis [Unknown]
  - Finger deformity [Not Recovered/Not Resolved]
  - Loss of personal independence in daily activities [Unknown]
  - Weight decreased [Not Recovered/Not Resolved]
  - Pain of skin [Not Recovered/Not Resolved]
  - Discomfort [Not Recovered/Not Resolved]
  - Cough [Not Recovered/Not Resolved]
  - Night sweats [Not Recovered/Not Resolved]
  - Joint swelling [Not Recovered/Not Resolved]
  - Grip strength decreased [Not Recovered/Not Resolved]
  - Pain in extremity [Not Recovered/Not Resolved]
  - Hyperthermia [Not Recovered/Not Resolved]
  - Memory impairment [Not Recovered/Not Resolved]
  - Inflammatory marker increased [Unknown]
  - Osteoarthritis [Not Recovered/Not Resolved]
  - Peripheral swelling [Not Recovered/Not Resolved]

NARRATIVE: CASE EVENT DATE: 2020
